FAERS Safety Report 7201264-1 (Version None)
Quarter: 2010Q4

REPORT INFORMATION
  Report Type: 
  Country: None (occurrence: None)
  Receive Date: 20101229
  Receipt Date: 20101221
  Transmission Date: 20110411
  Serious: No
  Sender: FDA-Public Use
  Company Number: US-JNJFOC-20101207928

PATIENT
  Sex: Male
  Weight: 74.84 kg

DRUGS (1)
  1. FENTANYL-100 [Suspect]
     Indication: NECK PAIN
     Dosage: NDC#0781-7242-55
     Route: 062

REACTIONS (4)
  - INCORRECT STORAGE OF DRUG [None]
  - PAIN [None]
  - THERAPEUTIC RESPONSE DECREASED [None]
  - TREATMENT NONCOMPLIANCE [None]
